FAERS Safety Report 13416816 (Version 1)
Quarter: 2017Q2

REPORT INFORMATION
  Report Type: Other
  Country: GR (occurrence: GR)
  Receive Date: 20170406
  Receipt Date: 20170406
  Transmission Date: 20170830
  Serious: Yes (Other)
  Sender: FDA-Public Use
  Company Number: GR-EMD SERONO-8151348

PATIENT
  Age: 45 Year
  Sex: Female

DRUGS (1)
  1. INTERFERON BETA-1A [Suspect]
     Active Substance: INTERFERON BETA-1A
     Indication: RELAPSING-REMITTING MULTIPLE SCLEROSIS

REACTIONS (1)
  - Glioblastoma [Unknown]
